FAERS Safety Report 17946506 (Version 1)
Quarter: 2020Q2

REPORT INFORMATION
  Report Type: Spontaneous
  Country: JP (occurrence: JP)
  Receive Date: 20200625
  Receipt Date: 20200625
  Transmission Date: 20200714
  Serious: Yes (Other)
  Sender: FDA-Public Use
  Company Number: JP-PFIZER INC-2020241936

PATIENT
  Age: 83 Year
  Sex: Male

DRUGS (3)
  1. VANCOMYCIN HCL [Concomitant]
     Active Substance: VANCOMYCIN HYDROCHLORIDE
     Indication: CLOSTRIDIUM DIFFICILE INFECTION
     Dosage: UNK
  2. ANAEMETRO [Suspect]
     Active Substance: METRONIDAZOLE
     Indication: CLOSTRIDIUM DIFFICILE INFECTION
     Dosage: UNK
  3. ANAEMETRO [Suspect]
     Active Substance: METRONIDAZOLE
     Indication: PSEUDOMEMBRANOUS COLITIS

REACTIONS (1)
  - Melaena [Unknown]
